FAERS Safety Report 15215295 (Version 1)
Quarter: 2018Q3

REPORT INFORMATION
  Report Type: Report from Study
  Country: ET (occurrence: ET)
  Receive Date: 20180730
  Receipt Date: 20180730
  Transmission Date: 20181010
  Serious: Yes (Other)
  Sender: FDA-Public Use
  Company Number: ET-SA-2018SA196264

PATIENT
  Sex: Female

DRUGS (6)
  1. COTRIMOXAZOLE [Concomitant]
     Active Substance: SULFAMETHOXAZOLE\TRIMETHOPRIM
     Dosage: UNK
  2. TDF [Concomitant]
     Active Substance: DILOXANIDE FUROATE\TINIDAZOLE
  3. 3TC [Concomitant]
     Active Substance: LAMIVUDINE
     Dosage: UNK
  4. RIFAPENTINE [Suspect]
     Active Substance: RIFAPENTINE
     Indication: ANTIBIOTIC PROPHYLAXIS
     Dosage: 900 MG, QW
     Route: 048
  5. EFAVIRENZ. [Concomitant]
     Active Substance: EFAVIRENZ
     Dosage: UNK
  6. ISONIAZID. [Suspect]
     Active Substance: ISONIAZID
     Indication: ANTIBIOTIC PROPHYLAXIS
     Dosage: 300 MG, QD
     Route: 048

REACTIONS (2)
  - Seizure [Recovered/Resolved]
  - Seizure [Recovered/Resolved]

NARRATIVE: CASE EVENT DATE: 20170904
